FAERS Safety Report 26022428 (Version 2)
Quarter: 2025Q4

REPORT INFORMATION
  Report Type: Spontaneous
  Country: RU (occurrence: RU)
  Receive Date: 20251110
  Receipt Date: 20251224
  Transmission Date: 20260118
  Serious: Yes (Other)
  Sender: ROCHE
  Company Number: RU-ROCHE-10000427871

PATIENT
  Age: 63 Year

DRUGS (6)
  1. ATEZOLIZUMAB [Suspect]
     Active Substance: ATEZOLIZUMAB
     Indication: Non-small cell lung cancer
     Dosage: 9 CYCLES OF MAINTENANCE THERAPY WITH ATEZOLIZUMAB 1200 MG + BEVACIZUMAB 15 MG/KG ONCE EVERY 3?WEEKS
     Dates: start: 20240723, end: 20240924
  2. ATEZOLIZUMAB [Suspect]
     Active Substance: ATEZOLIZUMAB
     Dates: start: 202410, end: 202504
  3. BEVACIZUMAB [Suspect]
     Active Substance: BEVACIZUMAB
     Indication: Non-small cell lung cancer
     Dates: start: 20240723, end: 20240924
  4. BEVACIZUMAB [Suspect]
     Active Substance: BEVACIZUMAB
     Dosage: 9 CYCLES OF MAINTENANCE THERAPY WITH ATEZOLIZUMAB 1200 MG + BEVACIZUMAB 15 MG/KG ONCE EVERY 3?WEEKS
     Dates: start: 202410, end: 202504
  5. CARBOPLATIN [Suspect]
     Active Substance: CARBOPLATIN
     Indication: Non-small cell lung cancer
     Dates: start: 20240723, end: 20240924
  6. PACLITAXEL [Suspect]
     Active Substance: PACLITAXEL
     Indication: Non-small cell lung cancer
     Dates: start: 20240723, end: 20240924

REACTIONS (1)
  - Polyneuropathy [Unknown]
